FAERS Safety Report 11142555 (Version 1)
Quarter: 2015Q2

REPORT INFORMATION
  Report Type: Spontaneous
  Country: US (occurrence: None)
  Receive Date: 20150526
  Receipt Date: 20150526
  Transmission Date: 20150821
  Serious: Yes (Other)
  Sender: FDA-Public Use
  Company Number: None

PATIENT
  Age: 66 Year
  Sex: Female
  Weight: 60.78 kg

DRUGS (7)
  1. ONE A DAY VITACRAVES GUMMIES [Concomitant]
  2. PHILLIPS COLON HEALTH PROBIOTIC [Concomitant]
     Active Substance: PROBIOTICS NOS
  3. PHILLIPS STOOL SOFTENER BULK DOCUSATE [Concomitant]
     Active Substance: DOCUSATE SODIUM
  4. GENERIC LIPITOR [Suspect]
     Active Substance: ATORVASTATIN CALCIUM
     Indication: BLOOD CHOLESTEROL
     Dosage: 1 PILL ONCE DAILY TAKEN BY MOUTH
     Route: 048
     Dates: start: 20130131, end: 20150505
  5. NATURE MADE D3 [Concomitant]
  6. LOSARTAN [Concomitant]
     Active Substance: LOSARTAN
  7. VITAFUSION CALCIUM [Concomitant]

REACTIONS (3)
  - Arthralgia [None]
  - Myalgia [None]
  - Drug withdrawal syndrome [None]

NARRATIVE: CASE EVENT DATE: 20150505
